FAERS Safety Report 20237520 (Version 1)
Quarter: 2021Q4

REPORT INFORMATION
  Report Type: Spontaneous
  Country: US (occurrence: None)
  Receive Date: 20211227
  Receipt Date: 20211227
  Transmission Date: 20220303
  Serious: No
  Sender: FDA-Public Use
  Company Number: None

PATIENT
  Age: 72 Year
  Sex: Female
  Weight: 56.25 kg

DRUGS (6)
  1. PROLIA [Suspect]
     Active Substance: DENOSUMAB
     Indication: Osteoporosis
     Dosage: OTHER FREQUENCY : EVERY SIX MONTHS;?
     Route: 058
  2. Citalooram [Concomitant]
  3. PLENDIL [Concomitant]
     Active Substance: FELODIPINE
  4. levoroxidine [Concomitant]
  5. TRAMADOL [Concomitant]
     Active Substance: TRAMADOL
  6. UNSPECIFIED INGREDIENT [Concomitant]
     Active Substance: UNSPECIFIED INGREDIENT

REACTIONS (1)
  - Skin mass [None]

NARRATIVE: CASE EVENT DATE: 20200901
